FAERS Safety Report 19468971 (Version 2)
Quarter: 2021Q4

REPORT INFORMATION
  Report Type: Report from Study
  Country: US (occurrence: US)
  Receive Date: 20210628
  Receipt Date: 20211222
  Transmission Date: 20220304
  Serious: Yes (Hospitalization, Other)
  Sender: FDA-Public Use
  Company Number: US-ORPHANEU-2021000102

PATIENT

DRUGS (2)
  1. CARBAGLU [Suspect]
     Active Substance: CARGLUMIC ACID
     Indication: Methylmalonic aciduria
     Dosage: 200 MILLIGRAM, BID
     Route: 065
     Dates: start: 20201208
  2. CARBAGLU [Suspect]
     Active Substance: CARGLUMIC ACID
     Dosage: 400 MILLIGRAM, BID
     Route: 065

REACTIONS (8)
  - Poor feeding infant [Unknown]
  - Infection [Unknown]
  - COVID-19 [Unknown]
  - Viral infection [Unknown]
  - Vomiting [Unknown]
  - Crying [Unknown]
  - Somnolence [Unknown]
  - Feeding intolerance [Unknown]

NARRATIVE: CASE EVENT DATE: 20211101
